FAERS Safety Report 12012720 (Version 5)
Quarter: 2016Q2

REPORT INFORMATION
  Report Type: Spontaneous
  Country: US (occurrence: US)
  Receive Date: 20160205
  Receipt Date: 20160419
  Transmission Date: 20160815
  Serious: No
  Sender: FDA-Public Use
  Company Number: US-PFIZER INC-2016066838

PATIENT
  Age: 60 Year
  Sex: Female
  Weight: 61 kg

DRUGS (4)
  1. ADRIAMYCIN [Suspect]
     Active Substance: DOXORUBICIN HYDROCHLORIDE
     Indication: BREAST CANCER STAGE II
     Dosage: 6 CYCLES OF CHEMOTHERAPY (1 IN 1 CYCLICAL)
     Route: 042
     Dates: start: 199201, end: 199206
  2. 5- FLUOROURACIL [Suspect]
     Active Substance: FLUOROURACIL
     Indication: BREAST CANCER STAGE II
     Dosage: 6 CYCLES OF CHEMOTHERAPY (1 IN 1 CYCLICAL)
     Route: 042
     Dates: start: 19920107, end: 19920612
  3. 5- FLUOROURACIL [Suspect]
     Active Substance: FLUOROURACIL
     Dosage: UNK
     Route: 042
     Dates: start: 19920107, end: 19920612
  4. ENDOXAN [Suspect]
     Active Substance: CYCLOPHOSPHAMIDE
     Indication: BREAST CANCER STAGE II
     Dosage: 6 CYCLES OF CHEMOTHERAPY (1 IN 1 CYCLICAL)
     Route: 042
     Dates: start: 199201, end: 199206

REACTIONS (2)
  - Breast cancer stage II [Not Recovered/Not Resolved]
  - Disease recurrence [Not Recovered/Not Resolved]

NARRATIVE: CASE EVENT DATE: 200006
